FAERS Safety Report 8393836-6 (Version None)
Quarter: 2012Q2

REPORT INFORMATION
  Report Type: 
  Country: None (occurrence: None)
  Receive Date: 20120530
  Receipt Date: 20120524
  Transmission Date: 20120825
  Serious: No
  Sender: FDA-Public Use
  Company Number: US-PFIZER INC-2012087561

PATIENT
  Sex: Female
  Weight: 81.633 kg

DRUGS (4)
  1. BARIUM SULFATE [Suspect]
     Indication: ENDODONTIC PROCEDURE
     Dosage: UNK
  2. ADVIL [Suspect]
     Indication: HEADACHE
     Dosage: 2 TABLETS OF 200MG DAILY
     Route: 048
     Dates: start: 20120404
  3. EXTRA STRENGTH TYLENOL [Suspect]
     Indication: HEADACHE
     Dosage: 500 MG, 1-2 TABS AS NEEDED
     Route: 048
  4. EXTRA STRENGTH TYLENOL [Suspect]
     Indication: FACIAL PAIN

REACTIONS (8)
  - HEADACHE [None]
  - SWELLING FACE [None]
  - ABDOMINAL PAIN UPPER [None]
  - FACIAL PAIN [None]
  - FEELING ABNORMAL [None]
  - LOCAL SWELLING [None]
  - ERYTHEMA [None]
  - PARAESTHESIA [None]
